FAERS Safety Report 5954564-7 (Version None)
Quarter: 2008Q4

REPORT INFORMATION
  Report Type: 
  Country: None (occurrence: None)
  Receive Date: 20081112
  Receipt Date: 20081031
  Transmission Date: 20090506
  Serious: Yes (Other)
  Sender: FDA-Public Use
  Company Number: CIP08002287

PATIENT
  Age: 69 Year
  Sex: Female

DRUGS (1)
  1. ACTONEL [Suspect]
     Dosage: 75 MG 2 CONSECUTIVE DAYS/MONTH, ORAL
     Route: 048
     Dates: start: 20081001, end: 20081001

REACTIONS (3)
  - HYPERTENSION [None]
  - HYPERTENSIVE CRISIS [None]
  - LOSS OF CONSCIOUSNESS [None]
